FAERS Safety Report 11625334 (Version 1)
Quarter: 2015Q4

REPORT INFORMATION
  Report Type: Spontaneous
  Country: IT (occurrence: IT)
  Receive Date: 20151013
  Receipt Date: 20151013
  Transmission Date: 20160304
  Serious: Yes (Other)
  Sender: FDA-Public Use
  Company Number: IT-TEVA-600095ACC

PATIENT
  Age: 47 Year
  Sex: Male

DRUGS (1)
  1. PACLITAXEL. [Suspect]
     Active Substance: PACLITAXEL
     Indication: PENILE CANCER
     Dosage: 175 MG/M2 CYCLICAL
     Route: 042

REACTIONS (5)
  - Hypotension [Recovered/Resolved]
  - Loss of consciousness [Recovered/Resolved]
  - Chest pain [Recovered/Resolved]
  - Sinus bradycardia [Recovered/Resolved]
  - Rash [Recovered/Resolved]

NARRATIVE: CASE EVENT DATE: 20150919
